FAERS Safety Report 9837389 (Version 1)
Quarter: 2014Q1

REPORT INFORMATION
  Report Type: Spontaneous
  Country: US (occurrence: US)
  Receive Date: 20140123
  Receipt Date: 20140123
  Transmission Date: 20141002
  Serious: No
  Sender: FDA-Public Use
  Company Number: US-PFIZER INC-2014021243

PATIENT
  Age: 62 Year
  Sex: Female
  Weight: 122 kg

DRUGS (3)
  1. EFFEXOR XR [Suspect]
     Indication: POST-TRAUMATIC STRESS DISORDER
     Dosage: 150 MG, 2X/DAY
  2. SYMBICORT [Concomitant]
     Indication: CHRONIC OBSTRUCTIVE PULMONARY DISEASE
     Dosage: AT AN UNKNOWN DOSE ^150/4.5^, 2X/DAY
  3. SPIRIVA [Concomitant]
     Indication: CHRONIC OBSTRUCTIVE PULMONARY DISEASE
     Dosage: 18 UG, DAILY

REACTIONS (4)
  - Off label use [Unknown]
  - Pain [Unknown]
  - Mobility decreased [Unknown]
  - Weight increased [Unknown]
